FAERS Safety Report 19504413 (Version 5)
Quarter: 2021Q3

REPORT INFORMATION
  Report Type: Spontaneous
  Country: US (occurrence: US)
  Receive Date: 20210708
  Receipt Date: 20210918
  Transmission Date: 20211014
  Serious: Yes (Hospitalization, Other)
  Sender: FDA-Public Use
  Company Number: US-UNITED THERAPEUTICS-UNT-2021-010199

PATIENT
  Age: 50 Year
  Sex: Female
  Weight: 47.62 kg

DRUGS (10)
  1. REMODULIN [Suspect]
     Active Substance: TREPROSTINIL
     Dosage: 0.0187 ?G/KG, CONTINUING
     Route: 058
     Dates: start: 2021
  2. REMODULIN [Suspect]
     Active Substance: TREPROSTINIL
     Dosage: UNK, CONTINUING (INCREASED DOSE)
     Route: 058
     Dates: start: 202105
  3. REMODULIN [Suspect]
     Active Substance: TREPROSTINIL
     Dosage: 0.0272 ?G/KG, CONTINUING
     Route: 058
     Dates: start: 2021
  4. OPSUMIT [Suspect]
     Active Substance: MACITENTAN
     Dosage: UNK
     Route: 048
  5. REMODULIN [Suspect]
     Active Substance: TREPROSTINIL
     Indication: PULMONARY ARTERIAL HYPERTENSION
     Dosage: UNK, CONTINUING
     Route: 058
     Dates: start: 20210524
  6. OPSUMIT [Suspect]
     Active Substance: MACITENTAN
     Indication: PULMONARY ARTERIAL HYPERTENSION
     Dosage: 10 MG, QD (1 TIME EVERY 1 DAY)
     Route: 048
  7. REMODULIN [Suspect]
     Active Substance: TREPROSTINIL
     Dosage: 0.0017 ?G/KG, CONTINUING
     Route: 058
     Dates: start: 202105
  8. REMODULIN [Suspect]
     Active Substance: TREPROSTINIL
     Dosage: 0.0085 ?G/KG, CONTINUING
     Route: 058
     Dates: start: 2021
  9. TADALAFIL. [Suspect]
     Active Substance: TADALAFIL
     Indication: PRODUCT USED FOR UNKNOWN INDICATION
     Dosage: UNK
     Route: 065
  10. UPTRAVI [Suspect]
     Active Substance: SELEXIPAG
     Indication: PULMONARY ARTERIAL HYPERTENSION
     Dosage: 1200 ?G, BID (2 TIMES EVERY 1 DAY)
     Route: 048

REACTIONS (14)
  - Dyspnoea at rest [Recovering/Resolving]
  - Tachycardia [Unknown]
  - Inflammation [Unknown]
  - Dyspnoea exertional [Recovering/Resolving]
  - Chest pain [Not Recovered/Not Resolved]
  - Hypoxia [Unknown]
  - Palpitations [Unknown]
  - Systemic lupus erythematosus [Unknown]
  - Infusion site swelling [Not Recovered/Not Resolved]
  - Arrhythmia [Unknown]
  - Infusion site pain [Unknown]
  - Therapy non-responder [Unknown]
  - Malaise [Unknown]
  - Condition aggravated [Unknown]

NARRATIVE: CASE EVENT DATE: 2021
